FAERS Safety Report 5480714-5 (Version None)
Quarter: 2007Q4

REPORT INFORMATION
  Report Type: 
  Country: None (occurrence: None)
  Receive Date: 20071003
  Receipt Date: 20070927
  Transmission Date: 20080405
  Serious: Yes (Life-Threatening, Hospitalization, Other)
  Sender: FDA-Public Use
  Company Number: 2007080033

PATIENT
  Age: 14 Year
  Sex: Female
  Weight: 56.7 kg

DRUGS (7)
  1. FELBATOL [Suspect]
     Indication: STATUS EPILEPTICUS
     Dosage: 3600 MG (1200 MG, 3 IN 1 D)
     Dates: start: 20060606, end: 20060702
  2. TOPAMAX [Suspect]
     Indication: STATUS EPILEPTICUS
     Dates: start: 20060715, end: 20061001
  3. PHENOBARBITAL TAB [Concomitant]
  4. KEPPRA [Concomitant]
  5. DILANTIN [Concomitant]
  6. PENTOBARBITAL CAP [Concomitant]
  7. VALPROIC ACID [Concomitant]

REACTIONS (14)
  - APLASTIC ANAEMIA [None]
  - BLOOD PRESSURE DIASTOLIC DECREASED [None]
  - BONE MARROW FAILURE [None]
  - DYSFUNCTIONAL UTERINE BLEEDING [None]
  - ENCEPHALITIS VIRAL [None]
  - ENDOMETRIOSIS [None]
  - EPISTAXIS [None]
  - EUTHYROID SICK SYNDROME [None]
  - GRAND MAL CONVULSION [None]
  - INFECTION [None]
  - OVARIAN CYST RUPTURED [None]
  - PANCYTOPENIA [None]
  - PELVIC ABSCESS [None]
  - THROMBOCYTOPENIA [None]
